FAERS Safety Report 7229942-9 (Version None)
Quarter: 2011Q1

REPORT INFORMATION
  Report Type: 
  Country: None (occurrence: None)
  Receive Date: 20110117
  Receipt Date: 20110110
  Transmission Date: 20110831
  Serious: Yes (Hospitalization)
  Sender: FDA-Public Use
  Company Number: US-ELI_LILLY_AND_COMPANY-US200805005989

PATIENT
  Sex: Male

DRUGS (3)
  1. HUMALOG MIX 75/25 [Suspect]
     Indication: DIABETES MELLITUS
     Dosage: 17 U, DAILY (1/D)
     Dates: start: 20070101
  2. METFORMIN HCL [Concomitant]
     Dosage: 500 MG, UNK
  3. HUMALOG [Suspect]
     Dosage: 4 U, BEFORE MEALS
     Dates: start: 20080501

REACTIONS (2)
  - BLOOD GLUCOSE FLUCTUATION [None]
  - NEPHROLITHIASIS [None]
